FAERS Safety Report 11353995 (Version 1)
Quarter: 2015Q3

REPORT INFORMATION
  Report Type: Spontaneous
  Country: US (occurrence: US)
  Receive Date: 20150807
  Receipt Date: 20150807
  Transmission Date: 20151125
  Serious: No
  Sender: FDA-Public Use
  Company Number: US-JNJFOC-20150115953

PATIENT
  Age: 20 Year
  Sex: Male
  Weight: 108.86 kg

DRUGS (4)
  1. MENS ROGAINE EXTRA STRENGTH [Suspect]
     Active Substance: MINOXIDIL
     Route: 061
  2. BIOTIN [Concomitant]
     Active Substance: BIOTIN
     Dosage: INTERVAL - ABOUT 6 MONTHS
     Route: 065
  3. MENS ROGAINE EXTRA STRENGTH [Suspect]
     Active Substance: MINOXIDIL
     Indication: ALOPECIA
     Dosage: DOSAGE - A LITTLE MORE THAN 1 ML.
     Route: 061
     Dates: start: 20141222
  4. UNSPECIFED MEDICATIONS [Concomitant]
     Active Substance: UNSPECIFIED INGREDIENT
     Indication: ALOPECIA
     Dosage: INTERVAL - 1 MONTH
     Route: 048
     Dates: start: 20141222

REACTIONS (2)
  - Dandruff [Not Recovered/Not Resolved]
  - Product use issue [Unknown]
